FAERS Safety Report 14860348 (Version 1)
Quarter: 2018Q2

REPORT INFORMATION
  Report Type: Spontaneous
  Country: US (occurrence: US)
  Receive Date: 20180423
  Receipt Date: 20180423
  Transmission Date: 20180711
  Serious: Yes (Death)
  Sender: FDA-Public Use
  Company Number: None

PATIENT
  Age: 61 Year
  Sex: Female

DRUGS (16)
  1. BRIMONIDINE TARTRATE. [Concomitant]
     Active Substance: BRIMONIDINE TARTRATE
  2. EFFERVESCENT POTASSIUM [Concomitant]
  3. ATROVENT HFA [Concomitant]
     Active Substance: IPRATROPIUM BROMIDE
  4. VITAMIN C [Concomitant]
     Active Substance: ASCORBIC ACID
  5. VITAMIN D [Concomitant]
     Active Substance: CHOLECALCIFEROL
  6. ALENDRONATE SODIUM. [Concomitant]
     Active Substance: ALENDRONATE SODIUM
  7. ADVAIR DISKUS [Concomitant]
     Active Substance: FLUTICASONE PROPIONATE\SALMETEROL XINAFOATE
  8. SPIRONOLACTONE. [Concomitant]
     Active Substance: SPIRONOLACTONE
  9. ONDANSETRON HCL [Concomitant]
     Active Substance: ONDANSETRON HYDROCHLORIDE
  10. ALDACTONE [Concomitant]
     Active Substance: SPIRONOLACTONE
  11. PROPRANOLOL HCL [Concomitant]
     Active Substance: PROPRANOLOL HYDROCHLORIDE
  12. PERCOCET [Concomitant]
     Active Substance: ACETAMINOPHEN\OXYCODONE HYDROCHLORIDE
  13. XIFAXAN [Suspect]
     Active Substance: RIFAXIMIN
     Indication: CHRONIC HEPATITIS C
     Route: 048
     Dates: start: 20160516, end: 20171130
  14. LASIX [Concomitant]
     Active Substance: FUROSEMIDE
  15. IPRATROPIUM BROMIDE. [Concomitant]
     Active Substance: IPRATROPIUM BROMIDE
  16. LACTULOSE. [Concomitant]
     Active Substance: LACTULOSE

REACTIONS (1)
  - Death [None]

NARRATIVE: CASE EVENT DATE: 20180420
